FAERS Safety Report 14767032 (Version 1)
Quarter: 2018Q2

REPORT INFORMATION
  Report Type: Spontaneous
  Country: US (occurrence: US)
  Receive Date: 20180417
  Receipt Date: 20180417
  Transmission Date: 20180711
  Serious: No
  Sender: FDA-Public Use
  Company Number: US-BAUSCH-BL-2017-008548

PATIENT
  Age: 57 Year
  Sex: Female
  Weight: 91.25 kg

DRUGS (2)
  1. OSMOPREP [Suspect]
     Active Substance: SODIUM PHOSPHATE, DIBASIC, ANHYDROUS\SODIUM PHOSPHATE, MONOBASIC, MONOHYDRATE
     Indication: COLONOSCOPY
     Dosage: FOUR TABLETS EVERY 15 MINUTES FOR A TOTAL OF 20 TABLETS THE EVENING BEFORE COLONOSCOPY
     Route: 048
     Dates: start: 20170312
  2. OSMOPREP [Suspect]
     Active Substance: SODIUM PHOSPHATE, DIBASIC, ANHYDROUS\SODIUM PHOSPHATE, MONOBASIC, MONOHYDRATE
     Dosage: FOUR TABLETS EVERY 15 MINUTES FOR A TOTAL OF 12 TABLETS THE MORNING
     Route: 048
     Dates: start: 20170313, end: 20170313

REACTIONS (2)
  - Adverse event [Unknown]
  - Drug ineffective [Unknown]

NARRATIVE: CASE EVENT DATE: 201703
